FAERS Safety Report 5813470-9 (Version None)
Quarter: 2008Q3

REPORT INFORMATION
  Report Type: 
  Country: None (occurrence: None)
  Receive Date: 20080717
  Receipt Date: 20080704
  Transmission Date: 20090109
  Serious: Yes (Hospitalization)
  Sender: FDA-Public Use
  Company Number: JP-ELI_LILLY_AND_COMPANY-JP200805004475

PATIENT
  Sex: Male
  Weight: 52.4 kg

DRUGS (14)
  1. PEMETREXED [Suspect]
     Indication: PERITONEAL MESOTHELIOMA MALIGNANT
     Dosage: 750 MG, UNK
     Route: 042
     Dates: start: 20080213, end: 20080213
  2. CISPLATIN [Suspect]
     Indication: PERITONEAL MESOTHELIOMA MALIGNANT
     Dosage: 110 MG, UNK
     Route: 042
     Dates: start: 20080213, end: 20080213
  3. PANVITAN [Concomitant]
     Dosage: 1 G, DAILY (1/D)
     Route: 048
     Dates: start: 20080204, end: 20080224
  4. CYANOCOBALAMIN [Concomitant]
     Dosage: 1 MG, UNK
     Route: 030
     Dates: start: 20080204, end: 20080204
  5. MAGMITT [Concomitant]
     Indication: CONSTIPATION
     Dosage: 990 MG, DAILY (1/D)
     Route: 048
     Dates: start: 20080117, end: 20080221
  6. FENTANYL TRANSDERMAL SYSTEM [Concomitant]
     Indication: CANCER PAIN
     Dosage: 2.5 MG, 3/D
     Route: 062
     Dates: start: 20080121, end: 20080317
  7. RHYTHMY [Concomitant]
     Indication: INSOMNIA
     Dosage: 2 MG, DAILY (1/D)
     Route: 048
     Dates: start: 20080130, end: 20080225
  8. TAKEPRON [Concomitant]
     Indication: GASTRITIS EROSIVE
     Dosage: 15 MG, DAILY (1/D)
     Route: 048
     Dates: start: 20080130, end: 20080224
  9. MOBIC [Concomitant]
     Indication: CANCER PAIN
     Dosage: 10 MG, DAILY (1/D)
     Route: 048
     Dates: start: 20080215, end: 20080224
  10. KYTRIL [Concomitant]
     Indication: PROPHYLAXIS
     Dosage: 3 MG, DAILY (1/D)
     Route: 042
     Dates: start: 20080213, end: 20080213
  11. DECADRON [Concomitant]
     Indication: PROPHYLAXIS
     Dosage: 8 MG, DAILY (1/D)
     Route: 042
     Dates: start: 20080213, end: 20080213
  12. NASEA [Concomitant]
     Indication: NAUSEA
     Dosage: 0.1 MG, DAILY (1/D)
     Route: 048
     Dates: start: 20080215, end: 20080219
  13. NAUZELIN [Concomitant]
     Indication: NAUSEA
     Dosage: 30 MG, DAILY (1/D)
     Route: 048
     Dates: start: 20080215, end: 20080221
  14. PRIMPERAN /00041901/ [Concomitant]
     Indication: NAUSEA
     Dosage: 10 MG, DAILY (1/D)
     Route: 042
     Dates: start: 20080217, end: 20080217

REACTIONS (4)
  - AZOTAEMIA [None]
  - NEUTROPHIL COUNT DECREASED [None]
  - PLATELET COUNT DECREASED [None]
  - WHITE BLOOD CELL COUNT DECREASED [None]
